FAERS Safety Report 21384985 (Version 2)
Quarter: 2023Q2

REPORT INFORMATION
  Report Type: Spontaneous
  Country: US (occurrence: US)
  Receive Date: 20220928
  Receipt Date: 20230410
  Transmission Date: 20230722
  Serious: No
  Sender: FDA-Public Use
  Company Number: US-AVEO ONCOLOGY-2022-AVEO-US000355

PATIENT

DRUGS (3)
  1. FOTIVDA [Suspect]
     Active Substance: TIVOZANIB HYDROCHLORIDE
     Indication: Renal cell carcinoma
     Dosage: UNK
     Route: 048
     Dates: end: 2022
  2. FOTIVDA [Suspect]
     Active Substance: TIVOZANIB HYDROCHLORIDE
     Dosage: 0.89 MG, DAILY
     Route: 048
     Dates: end: 2022
  3. FOTIVDA [Suspect]
     Active Substance: TIVOZANIB HYDROCHLORIDE
     Dosage: 0.89 MG, DAILY FOR 21 DAYS WITH 7 DAYS OFF (28-DAY CYCLE)
     Route: 048
     Dates: start: 2022

REACTIONS (11)
  - Adverse drug reaction [Unknown]
  - Palmar-plantar erythrodysaesthesia syndrome [Recovered/Resolved]
  - Eating disorder [Recovered/Resolved]
  - Weight decreased [Unknown]
  - Fatigue [Recovering/Resolving]
  - Aspartate aminotransferase increased [Unknown]
  - Hypothyroidism [Unknown]
  - Pain [Unknown]
  - Depressed mood [Unknown]
  - Decreased activity [Unknown]
  - Asthenia [Unknown]
